FAERS Safety Report 25705573 (Version 1)
Quarter: 2025Q3

REPORT INFORMATION
  Report Type: Report from Study
  Country: US (occurrence: US)
  Receive Date: 20250820
  Receipt Date: 20250820
  Transmission Date: 20251020
  Serious: Yes (Hospitalization)
  Sender: ABBVIE
  Company Number: US-ABBVIE-6420546

PATIENT
  Age: 66 Year
  Sex: Male

DRUGS (1)
  1. RINVOQ [Suspect]
     Active Substance: UPADACITINIB
     Indication: Colitis ulcerative
     Route: 048
     Dates: start: 20250616, end: 20250806

REACTIONS (7)
  - Hyponatraemia [Recovering/Resolving]
  - Pneumonia [Recovering/Resolving]
  - Hypokalaemia [Recovering/Resolving]
  - Tonsillitis [Recovering/Resolving]
  - Infectious mononucleosis [Recovering/Resolving]
  - Influenza like illness [Recovering/Resolving]
  - Asthenia [Recovering/Resolving]

NARRATIVE: CASE EVENT DATE: 20250801
